FAERS Safety Report 6522676-5 (Version None)
Quarter: 2009Q4

REPORT INFORMATION
  Report Type: 
  Country: None (occurrence: None)
  Receive Date: 20091230
  Receipt Date: 20091215
  Transmission Date: 20100525
  Serious: No
  Sender: FDA-Public Use
  Company Number: US-B.I. PHARMACEUTICALS,INC./RIDGEFIELD-2009-BP-14398BP

PATIENT
  Sex: Male

DRUGS (6)
  1. FLOMAX [Suspect]
     Dates: start: 20091201
  2. LIPITOR [Concomitant]
     Indication: BLOOD CHOLESTEROL INCREASED
  3. LISINOPRIL [Concomitant]
     Indication: HYPERTENSION
  4. ZETIA [Concomitant]
     Indication: BLOOD CHOLESTEROL INCREASED
  5. TOPROL-XL [Concomitant]
     Indication: HYPERTENSION
  6. PLAVIX [Concomitant]
     Indication: ANTICOAGULANT THERAPY

REACTIONS (1)
  - HEADACHE [None]
